FAERS Safety Report 8425743-4 (Version None)
Quarter: 2012Q2

REPORT INFORMATION
  Report Type: 
  Country: None (occurrence: None)
  Receive Date: 20120611
  Receipt Date: 20120608
  Transmission Date: 20120825
  Serious: Yes (Other)
  Sender: FDA-Public Use
  Company Number: PHHY2012AR040095

PATIENT
  Sex: Female

DRUGS (1)
  1. DIOVAN [Suspect]
     Indication: BLOOD PRESSURE
     Dosage: 80 MG, DAILY
     Dates: start: 20100101

REACTIONS (3)
  - ABASIA [None]
  - ARTHRALGIA [None]
  - LOWER LIMB FRACTURE [None]
